FAERS Safety Report 11005300 (Version 1)
Quarter: 2015Q2

REPORT INFORMATION
  Report Type: Spontaneous
  Country: US (occurrence: US)
  Receive Date: 20150409
  Receipt Date: 20150409
  Transmission Date: 20150821
  Serious: Yes (Other)
  Sender: FDA-Public Use
  Company Number: US-PFIZER INC-2015115966

PATIENT
  Age: 72 Year
  Sex: Male
  Weight: 93 kg

DRUGS (3)
  1. FORADIL [Concomitant]
     Active Substance: FORMOTEROL FUMARATE
     Dosage: UNK, 1X/DAY
  2. VIAGRA [Suspect]
     Active Substance: SILDENAFIL CITRATE
     Indication: SEXUAL DYSFUNCTION
     Dosage: ? TABLET OF 100 MG TABLET, UNK
     Route: 048
  3. VIAGRA [Suspect]
     Active Substance: SILDENAFIL CITRATE
     Dosage: 1 FULL TABLET 100 MG, AS NEEDED
     Route: 048

REACTIONS (7)
  - Drug effect incomplete [Unknown]
  - Parkinsonism [Unknown]
  - Tongue disorder [Unknown]
  - Prostatic disorder [Unknown]
  - Speech disorder [Unknown]
  - Penis disorder [Not Recovered/Not Resolved]
  - Genital discomfort [Unknown]

NARRATIVE: CASE EVENT DATE: 2012
